FAERS Safety Report 4634437-2 (Version None)
Quarter: 2005Q2

REPORT INFORMATION
  Report Type: 
  Country: None (occurrence: None)
  Receive Date: 20050412
  Receipt Date: 20050330
  Transmission Date: 20051028
  Serious: Yes (Hospitalization, Other)
  Sender: FDA-Public Use
  Company Number: 2005052087

PATIENT
  Age: 66 Year
  Sex: Male
  Weight: 81.6475 kg

DRUGS (8)
  1. DETROL LA [Suspect]
     Indication: POLLAKIURIA
     Dosage: 4 MG (4 MG, 1 IN 1 D), ORAL
     Route: 048
     Dates: start: 20010101
  2. OXYCODONE HYDROCHLORIDE AND ACETAMINOPHEN [Suspect]
     Indication: PAIN
     Dosage: (AS NECESSARY), ORAL
     Route: 048
     Dates: start: 20020101, end: 20040101
  3. SIMVASTATIN [Concomitant]
  4. BISOPROLOL (BISOPROLOL) [Concomitant]
  5. AMLODIPINE BESYLATE [Concomitant]
  6. LISINOPRIL [Concomitant]
  7. HYDROCHLOROTHIAZIDE [Concomitant]
  8. ULTRACET [Concomitant]

REACTIONS (8)
  - CEREBROVASCULAR ACCIDENT [None]
  - COMA [None]
  - CONSTIPATION [None]
  - HALLUCINATION [None]
  - NOCTURIA [None]
  - PAIN [None]
  - RECTAL HAEMORRHAGE [None]
  - ROAD TRAFFIC ACCIDENT [None]
